FAERS Safety Report 7809271-2 (Version None)
Quarter: 2011Q4

REPORT INFORMATION
  Report Type: 
  Country: None (occurrence: None)
  Receive Date: 20111012
  Receipt Date: 20111004
  Transmission Date: 20120403
  Serious: Yes (Other)
  Sender: FDA-Public Use
  Company Number: CA-UCBSA-042778

PATIENT
  Age: 68 Year
  Sex: Female

DRUGS (13)
  1. VIMPAT [Suspect]
     Dosage: DOSE PER INTAKE: 100MG+150MG
     Route: 048
     Dates: start: 20110903, end: 20110909
  2. VIMPAT [Suspect]
     Dosage: DOSE PER INTAKE: 100MG+100MG
     Route: 048
     Dates: start: 20110910
  3. LAMICTAL [Concomitant]
     Indication: EPILEPSY
     Dosage: DOSE PER INTAKE: 75MG +100MG (1 IN MORNING AND 1 IN EVENING)
     Route: 048
  4. TEGRETOL [Concomitant]
     Indication: EPILEPSY
     Dosage: 1 IN MORNING AND 1 IN EVENING
     Route: 048
  5. PRIMIDONE [Concomitant]
     Indication: EPILEPSY
     Dosage: 250MG+250MG+500MG (1 IN THE MOR, AN AND EVE)
     Route: 048
  6. CALCIUM CARBONATE [Concomitant]
     Dosage: 70MG+100MG (1 IN MOR, AN AND EVE)
     Route: 048
  7. FRISIUM [Concomitant]
     Dosage: GRADUALLY STOPPED
  8. FRISIUM [Concomitant]
     Dosage: FOR 2 YEARS
  9. VESICARE [Concomitant]
     Indication: HYPERTONIC BLADDER
     Dosage: 1 IN THE MORNING
     Route: 048
  10. RABEPRAZOLE SODIUM [Concomitant]
     Dosage: 1 (MOR)
     Route: 048
  11. VIMPAT [Suspect]
     Indication: COMPLEX PARTIAL SEIZURES
     Dosage: DOSE PER INTAKE: 150MG+200MG
     Route: 048
     Dates: start: 20110820, end: 20110826
  12. VIMPAT [Suspect]
     Dosage: DOSE PER INTAKE: 150MG+150MG
     Route: 048
     Dates: start: 20110827, end: 20110902
  13. SODIUM DOCUSATE [Concomitant]
     Dosage: 1 IN MOR AND EVE
     Route: 048

REACTIONS (10)
  - DIPLOPIA [None]
  - GAIT DISTURBANCE [None]
  - DECREASED ACTIVITY [None]
  - VOMITING [None]
  - HEADACHE [None]
  - TREMOR [None]
  - SUICIDAL IDEATION [None]
  - DYSARTHRIA [None]
  - CONVULSION [None]
  - AMNESIA [None]
